FAERS Safety Report 8973456 (Version 1)
Quarter: 2012Q4

REPORT INFORMATION
  Report Type: 
  Country: US (occurrence: US)
  Receive Date: 20121218
  Receipt Date: 20121218
  Transmission Date: 20130627
  Serious: No
  Sender: FDA-Public Use
  Company Number: US-BRISTOL-MYERS SQUIBB COMPANY-16802795

PATIENT
  Age: 49 Year
  Sex: Male
  Weight: 113.38 kg

DRUGS (6)
  1. ABILIFY TABS 5 MG [Suspect]
     Indication: ANXIETY
     Dosage: 1df= one half of 5 mg
     Dates: start: 20120724
  2. ABILIFY TABS 5 MG [Suspect]
     Indication: DEPRESSION
     Dosage: 1df= one half of 5 mg
     Dates: start: 20120724
  3. XANAX [Concomitant]
     Dosage: 1df= one half a tablet
  4. GLIPIZIDE [Concomitant]
  5. LISINOPRIL [Concomitant]
  6. PRAVASTATIN SODIUM [Concomitant]

REACTIONS (3)
  - Nausea [Unknown]
  - Insomnia [Unknown]
  - Abdominal distension [Unknown]
